FAERS Safety Report 8311690-5 (Version None)
Quarter: 2012Q2

REPORT INFORMATION
  Report Type: 
  Country: None (occurrence: None)
  Receive Date: 20120425
  Receipt Date: 20120421
  Transmission Date: 20120825
  Serious: No
  Sender: FDA-Public Use
  Company Number: US-PFIZER INC-2012098709

PATIENT
  Sex: Female
  Weight: 95.238 kg

DRUGS (5)
  1. NICOTROL [Suspect]
     Indication: SMOKING CESSATION THERAPY
     Dosage: UNK, AS NEEDED
     Dates: start: 20120417, end: 20120420
  2. SEROQUEL [Concomitant]
     Indication: DEPRESSION
     Dosage: 200 MG, 1X/DAY
  3. CLONAZEPAM [Concomitant]
     Indication: DEPRESSION
     Dosage: 1 MG, 3X/DAY
  4. VISTARIL [Concomitant]
     Indication: DEPRESSION
     Dosage: 20 MG, 1X/DAY
  5. VENLAFAXINE [Concomitant]
     Indication: DEPRESSION
     Dosage: 300 MG, 1X/DAY

REACTIONS (3)
  - FEELING ABNORMAL [None]
  - MALAISE [None]
  - NAUSEA [None]
